FAERS Safety Report 19480591 (Version 1)
Quarter: 2021Q3

REPORT INFORMATION
  Report Type: Spontaneous
  Country: DE (occurrence: DE)
  Receive Date: 20210701
  Receipt Date: 20210701
  Transmission Date: 20211014
  Serious: Yes (Other)
  Sender: FDA-Public Use
  Company Number: DE-TEVA-2021-DE-1927113

PATIENT
  Age: 90 Year
  Sex: Female

DRUGS (7)
  1. TORASEMID 5 MG [Concomitant]
     Active Substance: TORSEMIDE
     Dosage: LONG?TERM MEDICATION
  2. METOPROLOL RETARD 100 MG [Concomitant]
     Dosage: 100 MILLIGRAM DAILY; 1?0?0,LONG?TERM MEDICATION
  3. ASPIRIN. [Concomitant]
     Active Substance: ASPIRIN
     Dosage: 100 MILLIGRAM DAILY; 1?0?0,LONG?TERM MEDICATION
  4. OMEPRAZOL 20 MG [Concomitant]
     Active Substance: OMEPRAZOLE
     Dosage: 20 MILLIGRAM DAILY; 1?0?0,LONG?TERM MEDICATION
  5. NEPRESOL [Concomitant]
     Dosage: LONG?TERM MEDICATION
  6. TRAMADOL LIBRAPHARM RETARD 100 MG [Suspect]
     Active Substance: TRAMADOL HYDROCHLORIDE
     Indication: PAIN
     Dosage: 200 MILLIGRAM DAILY; 1 ? 0 ? 1,PZN: 06818090 ,USABLE UNTIL 08/2025 ,FIRST TIME USE OF TRAMADOL
     Route: 048
     Dates: start: 20210610, end: 20210613
  7. DEKRISTOL 20000 [Concomitant]
     Active Substance: CHOLECALCIFEROL
     Dosage: 1 DOSAGE FORMS,LONG?TERM MEDICATION

REACTIONS (4)
  - Delusion [Recovered/Resolved]
  - Hallucination [Recovered/Resolved]
  - Anxiety [Recovering/Resolving]
  - Confusional state [Recovering/Resolving]

NARRATIVE: CASE EVENT DATE: 20210610
